FAERS Safety Report 5476752-9 (Version None)
Quarter: 2007Q3

REPORT INFORMATION
  Report Type: 
  Country: None (occurrence: None)
  Receive Date: 20070813
  Receipt Date: 20030602
  Transmission Date: 20080115
  Serious: Yes (Death)
  Sender: FDA-Public Use
  Company Number: 20063193

PATIENT
  Sex: 0

DRUGS (9)
  1. LIORESAL [Suspect]
     Indication: MUSCLE SPASTICITY
     Dosage: MCG, DAILY, INTRATHECAL
     Route: 037
  2. APRANAX [Concomitant]
  3. RIVOTRIL [Concomitant]
  4. VALIUM [Concomitant]
  5. BOTOX [Concomitant]
  6. PERDOLAN [Concomitant]
  7. DAFALGAN [Concomitant]
  8. IBUPROFEN [Concomitant]
  9. INDOCID GEL [Concomitant]

REACTIONS (19)
  - ACUTE RESPIRATORY DISTRESS SYNDROME [None]
  - ANXIETY [None]
  - BACTERIAL INFECTION [None]
  - CARBON DIOXIDE INCREASED [None]
  - COMPLICATION OF DEVICE REMOVAL [None]
  - CONDITION AGGRAVATED [None]
  - DEVICE MALFUNCTION [None]
  - DYSPHAGIA [None]
  - FATIGUE [None]
  - HEADACHE [None]
  - HYPOTENSION [None]
  - MUSCLE SPASTICITY [None]
  - OXYGEN SATURATION DECREASED [None]
  - PAIN [None]
  - PARAESTHESIA [None]
  - PNEUMONIA [None]
  - PULMONARY FIBROSIS [None]
  - PYREXIA [None]
  - RESPIRATORY TRACT INFECTION [None]
